FAERS Safety Report 4618968-7 (Version None)
Quarter: 2005Q1

REPORT INFORMATION
  Report Type: 
  Country: None (occurrence: None)
  Receive Date: 20050325
  Receipt Date: 20050315
  Transmission Date: 20050727
  Serious: Yes (Other)
  Sender: FDA-Public Use
  Company Number: 200512336GDDC

PATIENT
  Age: 25 Year
  Sex: Female
  Weight: 78 kg

DRUGS (3)
  1. DOCETAXEL [Suspect]
     Indication: BREAST CANCER METASTATIC
     Dosage: DOSE: 190MG
     Route: 042
     Dates: start: 20050217
  2. METOCLOPRAMIDE [Concomitant]
     Indication: POST PROCEDURAL NAUSEA
     Route: 048
  3. ZOMETA [Concomitant]
     Indication: METASTASES TO BONE
     Route: 042
     Dates: start: 20050217

REACTIONS (2)
  - MOBILITY DECREASED [None]
  - MUSCLE HAEMORRHAGE [None]
